FAERS Safety Report 12537723 (Version 7)
Quarter: 2016Q4

REPORT INFORMATION
  Report Type: Report from Study
  Country: CO (occurrence: CO)
  Receive Date: 20160707
  Receipt Date: 20161109
  Transmission Date: 20170207
  Serious: Yes (Hospitalization, Other)
  Sender: FDA-Public Use
  Company Number: CO-INCYTE CORPORATION-2016IN003973

PATIENT
  Age: 44 Year
  Sex: Male
  Weight: 79 kg

DRUGS (7)
  1. DABIGATRAN [Concomitant]
     Active Substance: DABIGATRAN
     Indication: PRODUCT USED FOR UNKNOWN INDICATION
     Dosage: 150 MG, Q12H
     Route: 065
     Dates: start: 201606
  2. JAKAVI [Suspect]
     Active Substance: RUXOLITINIB
     Indication: POLYCYTHAEMIA VERA
     Dosage: 2 DF, Q12H
     Route: 048
     Dates: start: 20160519, end: 201606
  3. RIVAROXABAN [Concomitant]
     Active Substance: RIVAROXABAN
     Indication: PRODUCT USED FOR UNKNOWN INDICATION
     Dosage: 15 MG, BID
     Route: 048
  4. ACETAMINOPHEN. [Concomitant]
     Active Substance: ACETAMINOPHEN
     Dosage: UNK, QID
  5. ACETAMINOPHEN. [Concomitant]
     Active Substance: ACETAMINOPHEN
     Indication: PAIN
     Dosage: 500 MG, QID
     Route: 048
  6. ENOXAPARIN [Concomitant]
     Active Substance: ENOXAPARIN
     Indication: PRODUCT USED FOR UNKNOWN INDICATION
     Route: 065
  7. PRADAXA [Concomitant]
     Active Substance: DABIGATRAN ETEXILATE MESYLATE
     Indication: PRODUCT USED FOR UNKNOWN INDICATION
     Dosage: 150 MG, BID
     Route: 048

REACTIONS (21)
  - Haemoglobin increased [Unknown]
  - Apathy [Unknown]
  - Pulmonary thrombosis [Unknown]
  - Angina pectoris [Unknown]
  - Nausea [Unknown]
  - Cardiac disorder [Unknown]
  - Poor peripheral circulation [Unknown]
  - Paraesthesia [Unknown]
  - Headache [Unknown]
  - Cardiac failure [Unknown]
  - Chest pain [Unknown]
  - Skin discolouration [Unknown]
  - Red blood cell count increased [Unknown]
  - Tibia fracture [Unknown]
  - Pyrexia [Unknown]
  - Tremor [Unknown]
  - Fall [Unknown]
  - Pulmonary oedema [Unknown]
  - Hypoaesthesia [Unknown]
  - Feeling abnormal [Unknown]
  - Dizziness [Unknown]

NARRATIVE: CASE EVENT DATE: 20160609
